FAERS Safety Report 19212237 (Version 1)
Quarter: 2021Q2

REPORT INFORMATION
  Report Type: Spontaneous
  Country: US (occurrence: US)
  Receive Date: 20210504
  Receipt Date: 20210504
  Transmission Date: 20210717
  Serious: No
  Sender: FDA-Public Use
  Company Number: None

PATIENT
  Age: 73 Year
  Sex: Male

DRUGS (2)
  1. NAPROXEN. [Suspect]
     Active Substance: NAPROXEN
     Dates: start: 20210129, end: 20210228
  2. ASPIRIN. [Suspect]
     Active Substance: ASPIRIN
     Dates: start: 20201215

REACTIONS (4)
  - Blood loss anaemia [None]
  - Gastritis [None]
  - Peptic ulcer [None]
  - Gastric haemorrhage [None]

NARRATIVE: CASE EVENT DATE: 20210410
